FAERS Safety Report 9521231 (Version 1)
Quarter: 2013Q3

REPORT INFORMATION
  Report Type: Spontaneous
  Country: US (occurrence: None)
  Receive Date: 20130911
  Receipt Date: 20130911
  Transmission Date: 20140515
  Serious: Yes (Hospitalization)
  Sender: FDA-Public Use
  Company Number: SP06990

PATIENT
  Age: 71 Year
  Sex: Male
  Weight: 86.64 kg

DRUGS (2)
  1. XIFAXAN [Suspect]
     Indication: HEPATIC CIRRHOSIS
     Route: 048
     Dates: start: 2013, end: 201307
  2. LACTULOSE [Concomitant]

REACTIONS (6)
  - Dyspnoea [None]
  - Coronary artery stenosis [None]
  - Heart valve incompetence [None]
  - Ammonia increased [None]
  - Incoherent [None]
  - Dehydration [None]
